FAERS Safety Report 4927996-3 (Version None)
Quarter: 2006Q1

REPORT INFORMATION
  Report Type: 
  Country: None (occurrence: None)
  Receive Date: 20060131
  Receipt Date: 20051018
  Transmission Date: 20060701
  Serious: Yes (Hospitalization)
  Sender: FDA-Public Use
  Company Number: 200518196US

PATIENT
  Age: 77 Year
  Sex: Female

DRUGS (6)
  1. KETEK [Suspect]
     Indication: SINUS CONGESTION
     Dosage: 2X400 MG PO
     Route: 048
     Dates: start: 20051018, end: 20051018
  2. SYNTHROID [Concomitant]
  3. ACETYLSALICYLIC ACID SRT [Concomitant]
  4. CALCIUM GLUCONATE [Concomitant]
  5. METOPROLOL TARTRATE [Concomitant]
  6. PRAVASTATIN SODIUM (PRAVACHOL) [Concomitant]

REACTIONS (5)
  - ABDOMINAL PAIN [None]
  - CHILLS [None]
  - COUGH [None]
  - DIARRHOEA [None]
  - PYREXIA [None]
